FAERS Safety Report 10396023 (Version 3)
Quarter: 2014Q1

REPORT INFORMATION
  Report Type: Spontaneous
  Country: US (occurrence: None)
  Receive Date: 20130107
  Receipt Date: 20131226
  Transmission Date: 20141002
  Serious: No
  Sender: FDA-Public Use
  Company Number: PHEH2011US009974

PATIENT
  Age: 51 Year
  Sex: Female
  Weight: 68 kg

DRUGS (3)
  1. GILENYA (FTY) CAPSULE, 0.5MG [Suspect]
     Indication: MULTIPLE SCLEROSIS
     Route: 048
     Dates: start: 20110801
  2. INSULIN [Concomitant]
  3. VITAMIN D (ERGOCALCIFEROL) [Concomitant]

REACTIONS (7)
  - Malaise [None]
  - Pain [None]
  - Gait disturbance [None]
  - Weight increased [None]
  - Body tinea [None]
  - Rash macular [None]
  - Rash [None]
